FAERS Safety Report 5624642-0 (Version None)
Quarter: 2008Q1

REPORT INFORMATION
  Report Type: 
  Country: None (occurrence: None)
  Receive Date: 20080213
  Receipt Date: 20080205
  Transmission Date: 20080703
  Serious: Yes (Other)
  Sender: FDA-Public Use
  Company Number: US-ROCHE-521382

PATIENT
  Sex: Male
  Weight: 97.5 kg

DRUGS (2)
  1. ACCUTANE [Suspect]
     Route: 048
     Dates: start: 19920504, end: 19920826
  2. ACCUTANE [Suspect]
     Route: 048
     Dates: start: 19930721, end: 19930821

REACTIONS (14)
  - ANXIETY [None]
  - ARTHRITIS [None]
  - BACK PAIN [None]
  - BLOOD TESTOSTERONE DECREASED [None]
  - BLOOD TRIGLYCERIDES INCREASED [None]
  - COLITIS ULCERATIVE [None]
  - CROHN'S DISEASE [None]
  - DEPRESSION [None]
  - HEPATIC STEATOSIS [None]
  - INFLAMMATORY BOWEL DISEASE [None]
  - INSOMNIA [None]
  - INTERVERTEBRAL DISC DEGENERATION [None]
  - POUCHITIS [None]
  - VOMITING [None]
